FAERS Safety Report 9308436 (Version 2)
Quarter: 2014Q4

REPORT INFORMATION
  Report Type: Spontaneous
  Country: US (occurrence: US)
  Receive Date: 20130524
  Receipt Date: 20141205
  Transmission Date: 20150529
  Serious: Yes (Other)
  Sender: FDA-Public Use
  Company Number: US-BRISTOL-MYERS SQUIBB COMPANY-17483652

PATIENT
  Age: 66 Year
  Sex: Male

DRUGS (16)
  1. VITAMIN B12 [Concomitant]
     Active Substance: CYANOCOBALAMIN
     Dosage: 1DF=1000MCG/ML
     Route: 030
  2. TEMOVATE [Concomitant]
     Active Substance: CLOBETASOL PROPIONATE
     Indication: RASH
     Route: 061
  3. LOVAZA [Concomitant]
     Active Substance: OMEGA-3-ACID ETHYL ESTERS
     Dosage: CAPS
     Route: 048
  4. PRAVACHOL [Suspect]
     Active Substance: PRAVASTATIN SODIUM
  5. PLAVIX [Concomitant]
     Active Substance: CLOPIDOGREL BISULFATE
     Route: 048
  6. FLOMAX [Concomitant]
     Active Substance: TAMSULOSIN HYDROCHLORIDE
     Dosage: CAPS
     Route: 048
  7. LISINOPRIL. [Concomitant]
     Active Substance: LISINOPRIL
     Dosage: 1DF=10MG TAB
     Route: 048
  8. ZETIA [Concomitant]
     Active Substance: EZETIMIBE
     Dosage: TAB
     Route: 048
  9. CYANOCOBALAMINE [Concomitant]
     Dosage: 1DF=1000MCG/ML
     Route: 030
  10. TRILIPIX [Concomitant]
     Active Substance: FENOFIBRIC ACID
     Dosage: 1TAB
     Route: 048
  11. ASA [Concomitant]
     Active Substance: ASPIRIN
     Dosage: EVERY MRNG
     Route: 048
  12. LIVALO [Suspect]
     Active Substance: PITAVASTATIN CALCIUM
     Dosage: TAB
     Route: 048
  13. TESTOSTERONE CIPIONATE [Concomitant]
     Active Substance: TESTOSTERONE
     Route: 030
  14. FISH OIL [Concomitant]
     Active Substance: FISH OIL
     Dosage: TAB
  15. VIAGRA [Concomitant]
     Active Substance: SILDENAFIL CITRATE
     Dosage: HALF TAB
     Route: 048
  16. ALBUTEROL INHALER [Concomitant]
     Active Substance: ALBUTEROL
     Dosage: 2 PUFFS
     Route: 055

REACTIONS (2)
  - Drug hypersensitivity [Unknown]
  - Hepatitis [Unknown]
